FAERS Safety Report 4730067-2 (Version None)
Quarter: 2005Q3

REPORT INFORMATION
  Report Type: 
  Country: None (occurrence: None)
  Receive Date: 20050728
  Receipt Date: 20050715
  Transmission Date: 20060218
  Serious: Yes (Hospitalization, Other)
  Sender: FDA-Public Use
  Company Number: 2005103523

PATIENT
  Age: 76 Year
  Sex: Female

DRUGS (4)
  1. CELEBREX [Suspect]
     Indication: ANKYLOSING SPONDYLITIS
     Dosage: 200 MG (200 MG, 1 IN 1 D), ORAL
     Route: 048
  2. ZOPICLONE (ZOPICLONE) [Concomitant]
  3. COZAAR [Concomitant]
  4. SIMVASTATIN [Concomitant]

REACTIONS (4)
  - ANAEMIA [None]
  - HYPOTENSION [None]
  - OESOPHAGITIS [None]
  - RENAL FAILURE [None]
